FAERS Safety Report 9752880 (Version 1)
Quarter: 2013Q4

REPORT INFORMATION
  Report Type: Spontaneous
  Country: IT (occurrence: IT)
  Receive Date: 20131213
  Receipt Date: 20131213
  Transmission Date: 20140711
  Serious: Yes (Hospitalization, Other)
  Sender: FDA-Public Use
  Company Number: IT-ASTRAZENECA-2013SE89002

PATIENT
  Age: 16935 Day
  Sex: Female
  Weight: 40 kg

DRUGS (4)
  1. SEROQUEL [Suspect]
     Indication: PSYCHOTIC DISORDER
     Dosage: 100 MG X 2 AND 400 MG
     Route: 048
     Dates: start: 20100801, end: 20131101
  2. DELORAZEPAM [Concomitant]
     Indication: DEPRESSION
     Route: 048
  3. ZOLOFT [Concomitant]
     Indication: ANXIETY
     Route: 048
  4. MOVICOL [Concomitant]
     Route: 048

REACTIONS (4)
  - Psychotic disorder [Unknown]
  - Therapy cessation [Unknown]
  - Leukopenia [Unknown]
  - Neutropenia [Unknown]
